FAERS Safety Report 18740603 (Version 2)
Quarter: 2021Q2

REPORT INFORMATION
  Report Type: Spontaneous
  Country: US (occurrence: US)
  Receive Date: 20210114
  Receipt Date: 20210426
  Transmission Date: 20210717
  Serious: No
  Sender: FDA-Public Use
  Company Number: US-PFIZER INC-2021017720

PATIENT
  Age: 65 Year

DRUGS (1)
  1. ESTRING [Suspect]
     Active Substance: ESTRADIOL
     Indication: OESTROGEN REPLACEMENT THERAPY
     Dosage: UNK, EVERY 3 MONTHS (I INSERT EVERY THREE MONTHS FOR ESTROGEN)

REACTIONS (1)
  - Endometriosis [Unknown]
